FAERS Safety Report 17193546 (Version 1)
Quarter: 2019Q4

REPORT INFORMATION
  Report Type: Spontaneous
  Country: GB (occurrence: GB)
  Receive Date: 20191223
  Receipt Date: 20191223
  Transmission Date: 20200122
  Serious: No
  Sender: FDA-Public Use
  Company Number: US-MARKSANS PHARMA LTD 276613

PATIENT
  Sex: Male

DRUGS (1)
  1. GUAIFENESIN 100 MG/5ML ORAL SOLUTION FROM UK MARKET [Suspect]
     Active Substance: GUAIFENESIN

REACTIONS (1)
  - Drug hypersensitivity [Unknown]
